FAERS Safety Report 4268568-6 (Version None)
Quarter: 2004Q1

REPORT INFORMATION
  Report Type: 
  Country: None (occurrence: None)
  Receive Date: 20040112
  Receipt Date: 20040107
  Transmission Date: 20041129
  Serious: Yes (Death, Other)
  Sender: FDA-Public Use
  Company Number: PHBS2004JP00548

PATIENT
  Sex: Male

DRUGS (1)
  1. GLEEVEC [Suspect]
     Indication: GASTROINTESTINAL STROMAL TUMOUR
     Dosage: 400 MG/D
     Route: 048
     Dates: start: 20031201, end: 20031222

REACTIONS (3)
  - DISEASE PROGRESSION [None]
  - MALIGNANT PLEURAL EFFUSION [None]
  - RENAL CELL CARCINOMA STAGE UNSPECIFIED [None]
